FAERS Safety Report 18079503 (Version 3)
Quarter: 2020Q3

REPORT INFORMATION
  Report Type: Spontaneous
  Country: US (occurrence: US)
  Receive Date: 20200728
  Receipt Date: 20200824
  Transmission Date: 20201103
  Serious: Yes (Hospitalization, Other)
  Sender: FDA-Public Use
  Company Number: US-ROCHE-2649811

PATIENT
  Age: 70 Year
  Sex: Female

DRUGS (19)
  1. DULOXETINE. [Concomitant]
     Active Substance: DULOXETINE
  2. HYDROXYZINE [Concomitant]
     Active Substance: HYDROXYZINE HYDROCHLORIDE
  3. VITAMIN D3 [Concomitant]
     Active Substance: CHOLECALCIFEROL
  4. ASPIRIN. [Concomitant]
     Active Substance: ASPIRIN
  5. GABAPENTIN. [Concomitant]
     Active Substance: GABAPENTIN
  6. BUDESONIDE. [Concomitant]
     Active Substance: BUDESONIDE
  7. OCREVUS [Suspect]
     Active Substance: OCRELIZUMAB
     Indication: RELAPSING MULTIPLE SCLEROSIS
     Route: 042
     Dates: start: 20190116, end: 20190730
  8. PRAVASTATIN. [Concomitant]
     Active Substance: PRAVASTATIN
  9. CLARITIN [Concomitant]
     Active Substance: LORATADINE
  10. BACLOFEN. [Concomitant]
     Active Substance: BACLOFEN
     Indication: MUSCLE SPASTICITY
     Dosage: FREQUENCY: TID; ONGOING: YES
     Route: 048
  11. FUROSEMIDE. [Concomitant]
     Active Substance: FUROSEMIDE
  12. METOPROLOL. [Concomitant]
     Active Substance: METOPROLOL
  13. DICLOFENAC [Concomitant]
     Active Substance: DICLOFENAC
  14. TELMISARTAN. [Concomitant]
     Active Substance: TELMISARTAN
     Indication: HYPERTENSION
     Dosage: FREQUENCY: DIALY; ONGOING: YES
     Route: 048
  15. CALCIUM [Concomitant]
     Active Substance: CALCIUM
  16. VITAMIN B12 [Concomitant]
     Active Substance: CYANOCOBALAMIN
  17. MODAFINIL. [Concomitant]
     Active Substance: MODAFINIL
  18. MELATONIN [Concomitant]
     Active Substance: MELATONIN
  19. LEVOTHYROXINE. [Concomitant]
     Active Substance: LEVOTHYROXINE

REACTIONS (2)
  - Herpes zoster [Recovering/Resolving]
  - Breast cancer [Not Recovered/Not Resolved]

NARRATIVE: CASE EVENT DATE: 20200109
